FAERS Safety Report 16031234 (Version 2)
Quarter: 2019Q2

REPORT INFORMATION
  Report Type: Spontaneous
  Country: GR (occurrence: GR)
  Receive Date: 20190304
  Receipt Date: 20190401
  Transmission Date: 20190711
  Serious: Yes (Death, Other)
  Sender: FDA-Public Use
  Company Number: GR-PFIZER INC-2019095288

PATIENT
  Age: 74 Year
  Sex: Male

DRUGS (3)
  1. MEROPENEM. [Suspect]
     Active Substance: MEROPENEM
     Indication: MENINGITIS VIRAL
     Dosage: UNK
  2. ACYCLOVIR [ACICLOVIR] [Suspect]
     Active Substance: ACYCLOVIR
     Indication: MENINGITIS VIRAL
     Dosage: UNK
  3. VANCOMYCIN HCL [Suspect]
     Active Substance: VANCOMYCIN HYDROCHLORIDE
     Indication: MENINGITIS VIRAL
     Dosage: UNK

REACTIONS (6)
  - Drug ineffective for unapproved indication [Unknown]
  - Subdural haemorrhage [Unknown]
  - Septic shock [Fatal]
  - Nervous system disorder [Unknown]
  - Multiple organ dysfunction syndrome [Fatal]
  - Atrial fibrillation [Unknown]
